FAERS Safety Report 25844514 (Version 2)
Quarter: 2025Q4

REPORT INFORMATION
  Report Type: Spontaneous
  Country: JP (occurrence: JP)
  Receive Date: 20250925
  Receipt Date: 20251006
  Transmission Date: 20260118
  Serious: Yes (Other)
  Sender: JOHNSON AND JOHNSON
  Company Number: JP-JNJFOC-20250936988

PATIENT
  Age: 72 Year
  Sex: Male

DRUGS (1)
  1. DARATUMUMAB [Suspect]
     Active Substance: DARATUMUMAB
     Indication: Plasma cell myeloma
     Dosage: DOSE UNKNOWN
     Route: 058

REACTIONS (1)
  - Myeloma cast nephropathy [Unknown]
